FAERS Safety Report 8414894-6 (Version None)
Quarter: 2012Q2

REPORT INFORMATION
  Report Type: 
  Country: None (occurrence: None)
  Receive Date: 20120601
  Receipt Date: 20120601
  Transmission Date: 20120825
  Serious: Yes (Death)
  Sender: FDA-Public Use
  Company Number: None

PATIENT
  Sex: Female
  Weight: 64 kg

DRUGS (1)
  1. TEMOZOLOMIDE [Suspect]
     Dosage: 3150 MG
     Dates: end: 20120518

REACTIONS (4)
  - PANCYTOPENIA [None]
  - CHOLECYSTITIS ACUTE [None]
  - SOMNOLENCE [None]
  - BACTERIAL TEST POSITIVE [None]
